FAERS Safety Report 9242049 (Version 3)
Quarter: 2013Q3

REPORT INFORMATION
  Report Type: Report from Study
  Country: US (occurrence: US)
  Receive Date: 20130419
  Receipt Date: 20130823
  Transmission Date: 20140515
  Serious: Yes (Hospitalization)
  Sender: FDA-Public Use
  Company Number: US-EISAI INC-E7389-03735-CLI-US

PATIENT
  Age: 43 Year
  Sex: Female
  Weight: 85 kg

DRUGS (11)
  1. HALAVEN [Suspect]
     Indication: BREAST CANCER
     Route: 041
     Dates: start: 20121012, end: 20121102
  2. HALAVEN [Suspect]
     Dosage: UNKNOWN
     Route: 041
     Dates: start: 20121121, end: 20130110
  3. HALAVEN [Suspect]
     Dosage: UNKNOWN
     Route: 041
     Dates: start: 20130128, end: 20130326
  4. HALAVEN [Suspect]
     Dosage: UNKNOWN
     Route: 041
     Dates: start: 20130408, end: 20130408
  5. RAMUCIRUMAB [Suspect]
     Indication: BREAST CANCER
     Route: 065
     Dates: start: 20121012, end: 20121102
  6. RAMUCIRUMAB [Suspect]
     Dosage: UNKNOWN
     Route: 065
     Dates: start: 20121121, end: 20130102
  7. GAPENTIN [Concomitant]
     Route: 065
  8. MULTIVITAMIN [Concomitant]
     Dosage: UNKNOWN
     Route: 065
  9. LEVEMIR [Concomitant]
     Dosage: UNKNOWN
     Route: 065
  10. INSULIN [Concomitant]
     Route: 065
  11. METOPROLOL [Concomitant]
     Route: 065

REACTIONS (5)
  - Pancreatitis [Recovering/Resolving]
  - Hyperglycaemia [Unknown]
  - Abdominal pain [Recovering/Resolving]
  - Nausea [Unknown]
  - Cholecystitis [Recovering/Resolving]
